FAERS Safety Report 5487064-1 (Version None)
Quarter: 2007Q4

REPORT INFORMATION
  Report Type: 
  Country: None (occurrence: None)
  Receive Date: 20071016
  Receipt Date: 20071005
  Transmission Date: 20080405
  Serious: Yes (Hospitalization, Other)
  Sender: FDA-Public Use
  Company Number: HQWYE049826OCT04

PATIENT
  Sex: Female

DRUGS (2)
  1. PREMPRO/PREMPHASE [Suspect]
     Dosage: UNKNOWN
     Route: 065
  2. PROVERA [Suspect]

REACTIONS (1)
  - BREAST CANCER METASTATIC [None]
